FAERS Safety Report 22162192 (Version 1)
Quarter: 2023Q1

REPORT INFORMATION
  Report Type: Report from Study
  Country: CR (occurrence: CR)
  Receive Date: 20230331
  Receipt Date: 20230331
  Transmission Date: 20230418
  Serious: Yes (Other)
  Sender: FDA-Public Use
  Company Number: CR-MYLANLABS-2023M1033614

PATIENT
  Age: 68 Year
  Sex: Female
  Weight: 81 kg

DRUGS (9)
  1. LIPITOR [Suspect]
     Active Substance: ATORVASTATIN CALCIUM
     Indication: Blood triglycerides increased
     Dosage: 40 MILLIGRAM, QD
     Route: 048
     Dates: end: 202207
  2. LIPITOR [Suspect]
     Active Substance: ATORVASTATIN CALCIUM
     Dosage: 40 MILLIGRAM, QD
     Route: 048
     Dates: start: 20230323
  3. WARFARIN [Concomitant]
     Active Substance: WARFARIN
     Indication: Atrial fibrillation
     Dosage: UNK (2 TABLETS (MON TO FRI) 1 TABLET (SAT AND SUN)
     Route: 048
     Dates: start: 2005
  4. WARFARIN [Concomitant]
     Active Substance: WARFARIN
     Indication: Heart valve replacement
  5. WARFARIN [Concomitant]
     Active Substance: WARFARIN
     Indication: Arrhythmia
  6. PROPAFENONE [Concomitant]
     Active Substance: PROPAFENONE
     Indication: Atrial fibrillation
     Dosage: 2 DOSAGE FORM, QD
     Route: 048
  7. PROPAFENONE [Concomitant]
     Active Substance: PROPAFENONE
     Indication: Heart valve replacement
  8. PROPAFENONE [Concomitant]
     Active Substance: PROPAFENONE
     Indication: Arrhythmia
  9. METOPROLOL [Concomitant]
     Active Substance: METOPROLOL
     Indication: Arrhythmia
     Dosage: 2 DOSAGE FORM, QD
     Route: 048
     Dates: start: 20220924

REACTIONS (10)
  - Renal failure [Not Recovered/Not Resolved]
  - Malignant polyp [Not Recovered/Not Resolved]
  - Arrhythmia [Not Recovered/Not Resolved]
  - Condition aggravated [Not Recovered/Not Resolved]
  - Atrial fibrillation [Not Recovered/Not Resolved]
  - Cardiac failure [Not Recovered/Not Resolved]
  - Malaise [Not Recovered/Not Resolved]
  - Dyspnoea [Not Recovered/Not Resolved]
  - Insomnia [Not Recovered/Not Resolved]
  - Cardiomegaly [Not Recovered/Not Resolved]

NARRATIVE: CASE EVENT DATE: 20220301
